FAERS Safety Report 9561671 (Version 1)
Quarter: 2013Q3

REPORT INFORMATION
  Report Type: Spontaneous
  Country: US (occurrence: US)
  Receive Date: 20130927
  Receipt Date: 20130927
  Transmission Date: 20140515
  Serious: No
  Sender: FDA-Public Use
  Company Number: US-BIOGENIDEC-2013BI062290

PATIENT
  Age: 57 Year
  Sex: Female
  Weight: 68 kg

DRUGS (9)
  1. TECFIDERA [Suspect]
     Indication: MULTIPLE SCLEROSIS
     Route: 048
  2. TECFIDERA [Suspect]
     Indication: MULTIPLE SCLEROSIS
     Route: 048
  3. ZOLOFT [Concomitant]
     Route: 048
  4. VICODIN [Concomitant]
  5. ADDERALL [Concomitant]
     Route: 048
  6. AMPYRA [Concomitant]
     Route: 048
  7. VITAMIN D [Concomitant]
  8. VITAMIN B COMPLEX [Concomitant]
  9. MULTIVITAMIN [Concomitant]

REACTIONS (1)
  - Gait disturbance [Unknown]
